FAERS Safety Report 7679574-3 (Version None)
Quarter: 2011Q3

REPORT INFORMATION
  Report Type: 
  Country: None (occurrence: None)
  Receive Date: 20110812
  Receipt Date: 20110729
  Transmission Date: 20111222
  Serious: Yes (Disabling)
  Sender: FDA-Public Use
  Company Number: DK-MYLANLABS-2011S1016223

PATIENT
  Age: 54 Year
  Sex: Male

DRUGS (9)
  1. DIGOXIN [Suspect]
     Indication: PRODUCT USED FOR UNKNOWN INDICATION
  2. POTASSIUM CHLORIDE [Suspect]
     Indication: PRODUCT USED FOR UNKNOWN INDICATION
  3. MAGNYL /00002701/ [Suspect]
     Indication: PRODUCT USED FOR UNKNOWN INDICATION
  4. FUROSEMIDE [Suspect]
     Indication: PRODUCT USED FOR UNKNOWN INDICATION
  5. ONGLYZA [Suspect]
     Indication: TYPE 2 DIABETES MELLITUS
     Route: 048
     Dates: start: 20101110, end: 20101204
  6. INSULATARD NPH HUMAN [Suspect]
     Indication: PRODUCT USED FOR UNKNOWN INDICATION
  7. CORODIL /00042901/ [Suspect]
     Indication: PRODUCT USED FOR UNKNOWN INDICATION
  8. METFORMIN HCL [Suspect]
     Indication: DIABETES MELLITUS
  9. CRESTOR [Suspect]
     Indication: PRODUCT USED FOR UNKNOWN INDICATION

REACTIONS (3)
  - FLUID RETENTION [None]
  - WEIGHT INCREASED [None]
  - HEADACHE [None]
